FAERS Safety Report 8767147 (Version 2)
Quarter: 2012Q4

REPORT INFORMATION
  Report Type: 
  Country: CN (occurrence: CN)
  Receive Date: 20120903
  Receipt Date: 20120904
  Transmission Date: 20130627
  Serious: Yes (Life-Threatening)
  Sender: FDA-Public Use
  Company Number: CN-BAYER-2012-090816

PATIENT
  Age: 63 Year
  Sex: Male
  Weight: 80 kg

DRUGS (1)
  1. ULTRAVIST 370 [Suspect]
     Indication: RENAL CANCER
     Dosage: 100 ml, UNK
     Route: 042
     Dates: start: 20120831, end: 20120831

REACTIONS (5)
  - Rash generalised [Recovering/Resolving]
  - Convulsion [Recovered/Resolved]
  - Urinary incontinence [Recovered/Resolved]
  - Loss of consciousness [Recovered/Resolved]
  - Coma [Recovered/Resolved]
